FAERS Safety Report 16218389 (Version 4)
Quarter: 2019Q4

REPORT INFORMATION
  Report Type: Report from Study
  Country: None (occurrence: AR)
  Receive Date: 20190419
  Receipt Date: 20191205
  Transmission Date: 20200122
  Serious: Yes (Disabling, Other)
  Sender: FDA-Public Use
  Company Number: AR-ABBVIE-19K-007-2749839-00

PATIENT
  Age: 44 Year
  Sex: Female

DRUGS (3)
  1. HUMIRA [Suspect]
     Active Substance: ADALIMUMAB
     Indication: RHEUMATOID ARTHRITIS
     Route: 058
     Dates: start: 20170908, end: 201903
  2. METILPRES [Concomitant]
     Active Substance: PREDNISONE
     Indication: PRODUCT USED FOR UNKNOWN INDICATION
  3. METILPRES [Concomitant]
     Active Substance: PREDNISONE
     Dosage: DOSE INCREASED

REACTIONS (20)
  - Tendon injury [Unknown]
  - Injury [Unknown]
  - Carpal tunnel syndrome [Unknown]
  - Nodule [Unknown]
  - Arthralgia [Not Recovered/Not Resolved]
  - Pain in extremity [Not Recovered/Not Resolved]
  - Trigger finger [Unknown]
  - Mobility decreased [Unknown]
  - Joint range of motion decreased [Unknown]
  - Muscular weakness [Unknown]
  - Post procedural complication [Unknown]
  - Neuralgia [Unknown]
  - Joint effusion [Unknown]
  - Hypoaesthesia [Unknown]
  - Exostosis [Unknown]
  - Musculoskeletal stiffness [Unknown]
  - Nerve injury [Unknown]
  - Oedema peripheral [Unknown]
  - Arthralgia [Unknown]
  - Neuropathy peripheral [Recovering/Resolving]

NARRATIVE: CASE EVENT DATE: 201903
